FAERS Safety Report 7223412-X (Version None)
Quarter: 2011Q1

REPORT INFORMATION
  Report Type: 
  Country: None (occurrence: None)
  Receive Date: 20110112
  Receipt Date: 20100621
  Transmission Date: 20110831
  Serious: No
  Sender: FDA-Public Use
  Company Number: US-ALLERGAN-1008060US

PATIENT
  Sex: Female

DRUGS (8)
  1. PATADAY [Concomitant]
  2. DOLOBID [Concomitant]
  3. LIBRAX [Concomitant]
  4. VERAMYST [Concomitant]
  5. RESTASIS [Suspect]
     Indication: DRY EYE
     Dosage: UNK
     Route: 047
  6. ACIPHEX [Concomitant]
  7. XOPENEX [Concomitant]
  8. SYMBICORT [Concomitant]

REACTIONS (2)
  - VISION BLURRED [None]
  - FOREIGN BODY SENSATION IN EYES [None]
